FAERS Safety Report 6907012-4 (Version None)
Quarter: 2010Q3

REPORT INFORMATION
  Report Type: 
  Country: None (occurrence: None)
  Receive Date: 20100804
  Receipt Date: 20080603
  Transmission Date: 20110219
  Serious: No
  Sender: FDA-Public Use
  Company Number: US-PFIZER INC-2008044866

PATIENT
  Sex: Male
  Weight: 52.3 kg

DRUGS (4)
  1. NARDIL [Suspect]
     Indication: MAJOR DEPRESSION
     Route: 048
     Dates: start: 20080401, end: 20080521
  2. KLONOPIN [Concomitant]
  3. ZONEGRAN [Concomitant]
  4. PROVIGIL [Concomitant]

REACTIONS (1)
  - DRUG EFFECT DECREASED [None]
